FAERS Safety Report 6401253-0 (Version None)
Quarter: 2009Q4

REPORT INFORMATION
  Report Type: 
  Country: None (occurrence: None)
  Receive Date: 20091015
  Receipt Date: 20070320
  Transmission Date: 20100525
  Serious: Yes (Disabling)
  Sender: FDA-Public Use
  Company Number: US-ASTRAZENECA-2006UW08399

PATIENT
  Sex: Female

DRUGS (14)
  1. SEROQUEL [Suspect]
     Route: 048
     Dates: start: 20040203
  2. PRILOSEC OTC [Concomitant]
     Dates: start: 20040219
  3. KLONOPIN WAFERS [Concomitant]
     Dates: start: 20040426
  4. LORAZEPAM [Concomitant]
     Dates: start: 20040130
  5. TRICOR [Concomitant]
     Dates: start: 20040618
  6. LISINOPRIL [Concomitant]
     Dates: start: 20040702
  7. POTASSIUM CL [Concomitant]
     Dates: start: 20040219
  8. PREMARIN [Concomitant]
     Dates: start: 20040219
  9. FUROSEMIDE [Concomitant]
     Dates: start: 20040318
  10. PROTONIX [Concomitant]
     Dates: start: 20040920
  11. ZOCOR [Concomitant]
     Dates: start: 20040331
  12. WELLBUTRIN SR [Concomitant]
     Dates: start: 20040203
  13. CLARINEX [Concomitant]
     Dates: start: 20040219
  14. AVELOX [Concomitant]
     Dates: start: 20040219

REACTIONS (1)
  - ILL-DEFINED DISORDER [None]
